FAERS Safety Report 22606241 (Version 1)
Quarter: 2023Q2

REPORT INFORMATION
  Report Type: Spontaneous
  Country: EG (occurrence: EG)
  Receive Date: 20230615
  Receipt Date: 20230615
  Transmission Date: 20230721
  Serious: Yes (Hospitalization, Other)
  Sender: FDA-Public Use
  Company Number: EG-PFIZER INC-PV202300104757

PATIENT
  Sex: Male

DRUGS (2)
  1. ADRIAMYCIN [Suspect]
     Active Substance: DOXORUBICIN HYDROCHLORIDE
     Indication: Hepatocellular carcinoma
     Dosage: 1 DF
  2. ALIBENDOL [Suspect]
     Active Substance: ALIBENDOL
     Indication: Hepatocellular carcinoma
     Dosage: 1 DF

REACTIONS (2)
  - Hepatic cirrhosis [Recovering/Resolving]
  - Hepatic failure [Recovering/Resolving]
